FAERS Safety Report 4684941-6 (Version None)
Quarter: 2005Q2

REPORT INFORMATION
  Report Type: 
  Country: None (occurrence: None)
  Receive Date: 20050603
  Receipt Date: 20050520
  Transmission Date: 20051028
  Serious: Yes (Death, Hospitalization)
  Sender: FDA-Public Use
  Company Number: 6014991

PATIENT
  Age: 73 Year
  Sex: Male

DRUGS (6)
  1. LEVOTHYROXINE SODIUM [Suspect]
     Indication: HYPOTHYROIDISM
     Dosage: ORAL
     Route: 048
     Dates: start: 20040820
  2. IKOREL (TABLET) (NICORANDIL) [Suspect]
     Indication: DRUG USE FOR UNKNOWN INDICATION
     Dosage: ORAL
     Route: 048
     Dates: start: 20040820
  3. ALLOPURINOL [Suspect]
     Indication: DRUG USE FOR UNKNOWN INDICATION
     Dosage: ORAL
     Route: 048
     Dates: start: 20040820
  4. FUROSEMIDE [Suspect]
     Indication: DRUG USE FOR UNKNOWN INDICATION
     Dosage: ORAL
     Route: 048
     Dates: start: 20040820
  5. PREVISCAN(TABLET) (FLUINDIONE) [Suspect]
     Indication: DRUG USE FOR UNKNOWN INDICATION
     Dosage: 1,000 DOSAGE FORMS (1 DOSAGE FORMS, 1 IN 1 D) ORAL
     Route: 048
     Dates: start: 20040820
  6. IMOVANE(TABLET)(ZOPICLONE) [Suspect]
     Indication: DRUG USE FOR UNKNOWN INDICATION
     Dosage: ORAL
     Route: 048
     Dates: start: 20040820

REACTIONS (14)
  - ABDOMINAL PAIN LOWER [None]
  - ANAEMIA [None]
  - CEREBRAL DISORDER [None]
  - COMA [None]
  - DRUG INTERACTION [None]
  - FLANK PAIN [None]
  - HAEMATOMA [None]
  - HAEMODIALYSIS [None]
  - HYPOVOLAEMIA [None]
  - MUSCLE HAEMORRHAGE [None]
  - RENAL FAILURE ACUTE [None]
  - SEPSIS [None]
  - THERAPY NON-RESPONDER [None]
  - THROMBOCYTOPENIA [None]
